FAERS Safety Report 8139365-6 (Version None)
Quarter: 2012Q1

REPORT INFORMATION
  Report Type: 
  Country: None (occurrence: None)
  Receive Date: 20120215
  Receipt Date: 20120208
  Transmission Date: 20120608
  Serious: Yes (Hospitalization)
  Sender: FDA-Public Use
  Company Number: FR-BAXTER-2012BH004071

PATIENT
  Age: 57 Year
  Sex: Female

DRUGS (7)
  1. RITUXIMAB [Suspect]
     Indication: LYMPHOMA
     Route: 065
     Dates: start: 20111201, end: 20111201
  2. BACTRIM DS [Suspect]
     Indication: PRODUCT USED FOR UNKNOWN INDICATION
     Route: 048
     Dates: start: 20111212, end: 20111215
  3. CYCLOPHOSPHAMIDE [Suspect]
     Indication: LYMPHOMA
     Route: 042
     Dates: start: 20111215, end: 20111217
  4. VINCRISTINE SULFATE [Suspect]
     Indication: LYMPHOMA
     Route: 065
     Dates: start: 20111214, end: 20111214
  5. FOLINIC ACID [Suspect]
     Indication: LYMPHOMA
     Route: 065
     Dates: start: 20111215, end: 20111219
  6. DOXORUBICIN HCL [Suspect]
     Indication: LYMPHOMA
     Route: 065
     Dates: start: 20111215, end: 20111215
  7. METHOTREXATE [Suspect]
     Indication: LYMPHOMA
     Route: 065
     Dates: start: 20111214, end: 20111214

REACTIONS (1)
  - PANCREATITIS ACUTE [None]
